FAERS Safety Report 4640712-8 (Version None)
Quarter: 2005Q2

REPORT INFORMATION
  Report Type: 
  Country: None (occurrence: None)
  Receive Date: 20050325
  Receipt Date: 20040510
  Transmission Date: 20051028
  Serious: Yes (Hospitalization, Other)
  Sender: FDA-Public Use
  Company Number: 2004-02016

PATIENT
  Age: 70 Year
  Sex: Female
  Weight: 57 kg

DRUGS (9)
  1. FERRLECIT [Suspect]
     Indication: IRON DEFICIENCY ANAEMIA
     Dosage: INTRAVENOUS
     Route: 042
     Dates: start: 20040508, end: 20040508
  2. FLEXERIL [Concomitant]
  3. LASIX [Concomitant]
  4. NEURONTIN [Concomitant]
  5. SYNTHROID [Concomitant]
  6. PROTONIX [Concomitant]
  7. VIOXX [Concomitant]
  8. DESYREL [Concomitant]
  9. EFFEXOR [Concomitant]

REACTIONS (4)
  - INJECTION SITE DISCOLOURATION [None]
  - INJECTION SITE DISCOMFORT [None]
  - INJECTION SITE REACTION [None]
  - INJECTION SITE SWELLING [None]
